FAERS Safety Report 6332090-3 (Version None)
Quarter: 2009Q3

REPORT INFORMATION
  Report Type: 
  Country: None (occurrence: None)
  Receive Date: 20090828
  Receipt Date: 20070727
  Transmission Date: 20100115
  Serious: Yes (Other)
  Sender: FDA-Public Use
  Company Number: US-ASTRAZENECA-2007UW09621

PATIENT
  Age: 19225 Day
  Sex: Male
  Weight: 94.8 kg

DRUGS (20)
  1. SEROQUEL [Suspect]
     Indication: BIPOLAR DISORDER
     Route: 048
     Dates: start: 20030801
  2. SEROQUEL [Suspect]
     Indication: SCHIZOPHRENIA
     Route: 048
     Dates: start: 20030801
  3. SEROQUEL [Suspect]
     Indication: NERVOUSNESS
     Route: 048
     Dates: start: 20030801
  4. SEROQUEL [Suspect]
     Dosage: 100MG TO 400MG
     Route: 048
     Dates: start: 20050422
  5. SEROQUEL [Suspect]
     Dosage: 100MG TO 400MG
     Route: 048
     Dates: start: 20050422
  6. SEROQUEL [Suspect]
     Dosage: 100MG TO 400MG
     Route: 048
     Dates: start: 20050422
  7. NORVASC [Concomitant]
     Dates: start: 20051121
  8. LORTAB [Concomitant]
     Dosage: 10/500 DAILY AS REQUIRED
     Dates: start: 20051121
  9. PROTONIX [Concomitant]
     Dates: start: 20051121
  10. SOMA [Concomitant]
     Dosage: 350MG THREE TIMES A DAY AS NEEDED
     Dates: start: 20051121
  11. XANAX [Concomitant]
     Dates: start: 20051121
  12. BUSPIRONE HCL [Concomitant]
     Route: 048
     Dates: start: 20050401
  13. DEPAKOTE [Concomitant]
     Route: 048
     Dates: start: 20050422
  14. ZOLOFT [Concomitant]
     Route: 048
     Dates: start: 20050422
  15. FERROUS SULFATE TAB [Concomitant]
     Route: 048
     Dates: start: 20051213
  16. LIPITOR [Concomitant]
     Route: 048
     Dates: start: 20051213
  17. FELODIPINE [Concomitant]
     Route: 048
     Dates: start: 20051213
  18. ISOSOR MON [Concomitant]
     Route: 048
     Dates: start: 20051213
  19. NITROSTAT [Concomitant]
     Dosage: 0.5 MG AS DIRECTED
     Dates: start: 20051213
  20. KLONOPIN [Concomitant]
     Indication: ANXIETY
     Dates: start: 20051129

REACTIONS (4)
  - DIABETES MELLITUS [None]
  - DIABETIC NEUROPATHY [None]
  - PANCREATITIS ACUTE [None]
  - TYPE 2 DIABETES MELLITUS [None]
